FAERS Safety Report 25450076 (Version 3)
Quarter: 2025Q3

REPORT INFORMATION
  Report Type: Report from Study
  Country: CA (occurrence: CA)
  Receive Date: 20250618
  Receipt Date: 20250915
  Transmission Date: 20251020
  Serious: Yes (Other)
  Sender: JOHNSON AND JOHNSON
  Company Number: CA-JNJFOC-20240175600

PATIENT
  Age: 50 Year
  Sex: Male

DRUGS (10)
  1. REMICADE [Suspect]
     Active Substance: INFLIXIMAB
     Indication: Colitis ulcerative
     Dosage: EXPIRY DATE: MAY-2027
     Route: 041
     Dates: start: 20200226
  2. REMICADE [Suspect]
     Active Substance: INFLIXIMAB
     Route: 041
     Dates: start: 20191120
  3. REMICADE [Suspect]
     Active Substance: INFLIXIMAB
     Dosage: EXP 10/2026
     Route: 041
     Dates: start: 20191120
  4. REMICADE [Suspect]
     Active Substance: INFLIXIMAB
     Dosage: EXP 10/2026
     Route: 041
  5. REMICADE [Suspect]
     Active Substance: INFLIXIMAB
     Dosage: EXP 10/2026
     Route: 041
  6. REMICADE [Suspect]
     Active Substance: INFLIXIMAB
     Route: 041
  7. DEXILANT [Concomitant]
     Active Substance: DEXLANSOPRAZOLE
     Indication: Product used for unknown indication
  8. AMLODIPINE [Concomitant]
     Active Substance: AMLODIPINE BESYLATE
     Indication: Product used for unknown indication
  9. IMURAN [Concomitant]
     Active Substance: AZATHIOPRINE
     Indication: Product used for unknown indication
  10. TWYNSTA [Concomitant]
     Active Substance: AMLODIPINE BESYLATE\TELMISARTAN
     Indication: Blood pressure measurement

REACTIONS (15)
  - Colon cancer [Unknown]
  - Arthropathy [Recovering/Resolving]
  - Frequent bowel movements [Unknown]
  - Illness [Recovering/Resolving]
  - Vertigo [Unknown]
  - Ear disorder [Unknown]
  - Prostatomegaly [Not Recovered/Not Resolved]
  - Back pain [Unknown]
  - Ocular hyperaemia [Not Recovered/Not Resolved]
  - Vision blurred [Unknown]
  - Eye pruritus [Unknown]
  - Cough [Not Recovered/Not Resolved]
  - Hypertension [Unknown]
  - Product dose omission issue [Unknown]
  - Off label use [Unknown]

NARRATIVE: CASE EVENT DATE: 20240418
